FAERS Safety Report 19368991 (Version 1)
Quarter: 2021Q2

REPORT INFORMATION
  Report Type: Spontaneous
  Country: US (occurrence: US)
  Receive Date: 20210602
  Receipt Date: 20210602
  Transmission Date: 20210717
  Serious: No
  Sender: FDA-Public Use
  Company Number: US-ROCHE-2693203

PATIENT
  Sex: Male
  Weight: 95.34 kg

DRUGS (1)
  1. OCREVUS [Suspect]
     Active Substance: OCRELIZUMAB
     Indication: MULTIPLE SCLEROSIS
     Dosage: INFUSION FOR 4 HOURS
     Route: 042
     Dates: start: 201810

REACTIONS (2)
  - Weight decreased [Unknown]
  - Sperm concentration decreased [Not Recovered/Not Resolved]

NARRATIVE: CASE EVENT DATE: 201908
